FAERS Safety Report 8102503-5 (Version None)
Quarter: 2012Q1

REPORT INFORMATION
  Report Type: 
  Country: None (occurrence: None)
  Receive Date: 20120201
  Receipt Date: 20120121
  Transmission Date: 20120608
  Serious: Yes (Other)
  Sender: FDA-Public Use
  Company Number: US-BAYER-2011-040434

PATIENT
  Age: 25 Year
  Sex: Female
  Weight: 58.957 kg

DRUGS (4)
  1. YASMIN [Suspect]
     Indication: CONTRACEPTION
     Dosage: UNK
     Dates: start: 20050101
  2. YAZ [Suspect]
     Indication: CONTRACEPTION
     Dosage: UNK
     Dates: start: 20050101
  3. ZOLOFT [Concomitant]
     Indication: DEPRESSION
     Dosage: UNK
     Dates: start: 19990101
  4. ZOLOFT [Concomitant]
     Indication: ANXIETY

REACTIONS (5)
  - EMOTIONAL DISTRESS [None]
  - CHOLELITHIASIS [None]
  - ANXIETY [None]
  - CHEST PAIN [None]
  - PAIN [None]
